FAERS Safety Report 15131078 (Version 3)
Quarter: 2018Q3

REPORT INFORMATION
  Report Type: Report from Study
  Country: JP (occurrence: JP)
  Receive Date: 20180711
  Receipt Date: 20180906
  Transmission Date: 20181010
  Serious: Yes (Death, Other)
  Sender: FDA-Public Use
  Company Number: JP-ASTRAZENECA-2018SE87291

PATIENT
  Age: 19 Year
  Sex: Female

DRUGS (2)
  1. LYNPARZA [Suspect]
     Active Substance: OLAPARIB
     Indication: OVARIAN CANCER
     Route: 048
     Dates: start: 20180525, end: 20180625
  2. LYNPARZA [Suspect]
     Active Substance: OLAPARIB
     Indication: OVARIAN CANCER
     Route: 048
     Dates: start: 20180424

REACTIONS (4)
  - Bone marrow failure [Recovered/Resolved]
  - Nausea [Unknown]
  - Gastritis [Unknown]
  - Vomiting [Unknown]

NARRATIVE: CASE EVENT DATE: 20180518
